FAERS Safety Report 23670778 (Version 1)
Quarter: 2024Q1

REPORT INFORMATION
  Report Type: Spontaneous
  Country: US (occurrence: US)
  Receive Date: 20240326
  Receipt Date: 20240326
  Transmission Date: 20240409
  Serious: Yes (Other)
  Sender: FDA-Public Use
  Company Number: US-AMGEN-USASP2024059777

PATIENT

DRUGS (4)
  1. ADALIMUMAB [Suspect]
     Active Substance: ADALIMUMAB\ISOPROPYL ALCOHOL
     Indication: Colitis ulcerative
     Dosage: UNK
     Route: 065
  2. ADALIMUMAB [Suspect]
     Active Substance: ADALIMUMAB\ISOPROPYL ALCOHOL
     Indication: Crohn^s disease
  3. INFLIXIMAB [Suspect]
     Active Substance: INFLIXIMAB
     Indication: Crohn^s disease
     Dosage: UNK
     Route: 065
  4. INFLIXIMAB [Suspect]
     Active Substance: INFLIXIMAB
     Indication: Colitis ulcerative

REACTIONS (17)
  - Legionella infection [Unknown]
  - Pneumonia pneumococcal [Unknown]
  - Nocardiosis [Unknown]
  - Actinomycosis [Unknown]
  - Clostridium difficile infection [Unknown]
  - Cryptococcosis [Unknown]
  - Aspergillus infection [Unknown]
  - Pneumocystis jirovecii infection [Unknown]
  - Tuberculosis [Unknown]
  - Sepsis [Unknown]
  - Histoplasmosis [Unknown]
  - Candida infection [Unknown]
  - Papilloma viral infection [Unknown]
  - Influenza [Unknown]
  - Cytomegalovirus infection [Unknown]
  - Herpes simplex [Unknown]
  - Varicella zoster virus infection [Unknown]
